FAERS Safety Report 5827522-0 (Version None)
Quarter: 2008Q3

REPORT INFORMATION
  Report Type: 
  Country: None (occurrence: None)
  Receive Date: 20080730
  Receipt Date: 20080723
  Transmission Date: 20090109
  Serious: Yes (Other)
  Sender: FDA-Public Use
  Company Number: US-JNJCH-2008019262

PATIENT
  Age: 50 Year
  Sex: Female
  Weight: 79.4 kg

DRUGS (1)
  1. LISTERINE WHITENING QUICK DISSOLVING STRIPS [Suspect]
     Indication: DENTAL CARE
     Dosage: TEXT:2 STRIPS TWICE DAILY
     Route: 048
     Dates: start: 20080716, end: 20080722

REACTIONS (4)
  - CHEILITIS [None]
  - LIP SWELLING [None]
  - SWOLLEN TONGUE [None]
  - TONGUE DISORDER [None]
